FAERS Safety Report 11971347 (Version 1)
Quarter: 2016Q1

REPORT INFORMATION
  Report Type: Spontaneous
  Country: US (occurrence: US)
  Receive Date: 20160128
  Receipt Date: 20160128
  Transmission Date: 20160526
  Serious: Yes (Other)
  Sender: FDA-Public Use
  Company Number: US-BEH-2016058330

PATIENT
  Age: 44 Year
  Sex: Female

DRUGS (1)
  1. INTRAVENOUS IMMUNOGLOBULIN [Suspect]
     Active Substance: HUMAN IMMUNOGLOBULIN G
     Indication: GUILLAIN-BARRE SYNDROME
     Route: 042

REACTIONS (6)
  - White blood cell count increased [Recovering/Resolving]
  - Pyrexia [Recovering/Resolving]
  - Hypotension [Recovering/Resolving]
  - Tachycardia [Recovering/Resolving]
  - Splenic infarction [Recovering/Resolving]
  - Abdominal pain upper [Recovered/Resolved]
